FAERS Safety Report 6256725-9 (Version None)
Quarter: 2009Q3

REPORT INFORMATION
  Report Type: 
  Country: None (occurrence: None)
  Receive Date: 20090706
  Receipt Date: 20090624
  Transmission Date: 20100115
  Serious: Yes (Hospitalization)
  Sender: FDA-Public Use
  Company Number: DE-JNJFOC-20090608515

PATIENT
  Age: 71 Year
  Sex: Female

DRUGS (6)
  1. RISPERDAL [Suspect]
     Route: 048
  2. RISPERDAL [Suspect]
     Indication: DRUG USE FOR UNKNOWN INDICATION
     Dosage: 0.5 50 1.5 MG
     Route: 048
  3. ARICEPT [Suspect]
     Indication: DRUG USE FOR UNKNOWN INDICATION
     Route: 048
  4. DIGITOXIN TAB [Concomitant]
     Route: 048
  5. BISOPROLOL [Concomitant]
     Route: 048
  6. IDEOS [Concomitant]
     Route: 048

REACTIONS (1)
  - PLEUROTHOTONUS [None]
